FAERS Safety Report 4393339-X (Version None)
Quarter: 2004Q3

REPORT INFORMATION
  Report Type: 
  Country: None (occurrence: None)
  Receive Date: 20040709
  Receipt Date: 20040624
  Transmission Date: 20050211
  Serious: Yes (Hospitalization)
  Sender: FDA-Public Use
  Company Number: FR-BRISTOL-MYERS SQUIBB COMPANY-12624763

PATIENT
  Age: 75 Year
  Sex: Male

DRUGS (6)
  1. ELISOR TABS 20 MG [Suspect]
     Indication: HYPERCHOLESTEROLAEMIA
     Dosage: DURATION OF THERAPY:  ^FEW YEARS^
     Route: 048
  2. SOTALOL HCL [Suspect]
     Indication: MYOCARDIAL ISCHAEMIA
     Route: 048
     Dates: end: 20040226
  3. PLAVIX [Suspect]
     Indication: MYOCARDIAL ISCHAEMIA
     Dosage: DURATION OF THERAPY:  ^FEW YEARS^
     Route: 048
  4. VASTAREL [Suspect]
     Dosage: DOSE VALUE:  3 UNIT;  DURATION OF THERAPY:  ^FEW YEARS^
     Route: 048
  5. VIOXX [Suspect]
     Route: 048
     Dates: start: 20040212, end: 20040226
  6. TANAKAN [Suspect]
     Indication: CEREBROVASCULAR DISORDER
     Route: 048

REACTIONS (4)
  - DIARRHOEA [None]
  - HAEMODYNAMIC INSTABILITY [None]
  - PYREXIA [None]
  - VOMITING [None]
